FAERS Safety Report 18547984 (Version 1)
Quarter: 2020Q4

REPORT INFORMATION
  Report Type: Spontaneous
  Country: None (occurrence: US)
  Receive Date: 20201125
  Receipt Date: 20201125
  Transmission Date: 20210114
  Serious: No
  Sender: FDA-Public Use
  Company Number: US-TIME-CAP LABS, INC.-2096314

PATIENT

DRUGS (1)
  1. EXTRA STRENGTH HEADACHE RELIEF [Suspect]
     Active Substance: ACETAMINOPHEN\ASPIRIN\CAFFEINE
     Route: 048

REACTIONS (1)
  - Hypersensitivity [Unknown]
